FAERS Safety Report 9559685 (Version 1)
Quarter: 2013Q3

REPORT INFORMATION
  Report Type: Spontaneous
  Country: US (occurrence: US)
  Receive Date: 20130927
  Receipt Date: 20130927
  Transmission Date: 20140515
  Serious: No
  Sender: FDA-Public Use
  Company Number: US-009507513-1309USA009309

PATIENT
  Age: 26 Year
  Sex: Female
  Weight: 63.49 kg

DRUGS (1)
  1. IMPLANON [Suspect]
     Indication: CONTRACEPTION
     Dosage: UNK, EVERY 3 YEARS
     Route: 059
     Dates: start: 20100818

REACTIONS (4)
  - Ovarian cyst [Unknown]
  - Menstruation irregular [Unknown]
  - Incorrect drug administration duration [Unknown]
  - Expired drug administered [Unknown]
